FAERS Safety Report 6439697-3 (Version None)
Quarter: 2009Q4

REPORT INFORMATION
  Report Type: 
  Country: None (occurrence: None)
  Receive Date: 20091113
  Receipt Date: 20091104
  Transmission Date: 20100525
  Serious: Yes (Hospitalization)
  Sender: FDA-Public Use
  Company Number: GXKR2009GB12152

PATIENT
  Age: 82 Year
  Sex: Female

DRUGS (7)
  1. ALENDRONIC ACID (NGX) [Suspect]
     Indication: FRACTURE
     Dosage: 70 MG, UNK
     Route: 048
     Dates: start: 20091011, end: 20091015
  2. ALENDRONIC ACID (NGX) [Suspect]
     Indication: PROPHYLAXIS
  3. ACETYLSALICYLIC ACID [Concomitant]
     Indication: PROPHYLAXIS
     Dosage: 70 MG, UNK
     Route: 048
     Dates: start: 20091007
  4. CALCICHEW D3 [Concomitant]
     Dosage: 1 DF, QD
     Route: 048
     Dates: start: 20091007
  5. CITALOPRAM [Concomitant]
     Dosage: 30 MG, QD
  6. PARACETAMOL [Concomitant]
     Indication: PAIN
     Dosage: 1 G, UNK
     Route: 048
     Dates: start: 20091007
  7. TOLTERODINE [Concomitant]
     Dosage: 2 MG, BID

REACTIONS (5)
  - ERYTHEMA [None]
  - GLOSSODYNIA [None]
  - LIP SWELLING [None]
  - MOUTH ULCERATION [None]
  - PAIN IN JAW [None]
